FAERS Safety Report 8016476-7 (Version None)
Quarter: 2011Q4

REPORT INFORMATION
  Report Type: 
  Country: None (occurrence: None)
  Receive Date: 20111230
  Receipt Date: 20111229
  Transmission Date: 20120403
  Serious: Yes (Other)
  Sender: FDA-Public Use
  Company Number: US-ABBOTT-11P-163-0885288-00

PATIENT
  Sex: Female
  Weight: 45.4 kg

DRUGS (9)
  1. VITAMIN B-12 [Concomitant]
     Indication: PRODUCT USED FOR UNKNOWN INDICATION
  2. OMEPRAZOLE [Concomitant]
     Indication: GASTROOESOPHAGEAL REFLUX DISEASE
  3. PROMETHAZINE [Concomitant]
     Indication: PRURITUS
     Dosage: AS NEEDED
  4. HUMIRA [Suspect]
     Indication: CROHN'S DISEASE
     Dates: start: 20110925
  5. MIRALAX [Suspect]
     Indication: PRODUCT USED FOR UNKNOWN INDICATION
  6. VITAMIN C [Concomitant]
     Indication: PRODUCT USED FOR UNKNOWN INDICATION
  7. IMURAN [Concomitant]
     Indication: PRODUCT USED FOR UNKNOWN INDICATION
  8. LEXAPRO [Concomitant]
     Indication: DEPRESSION
  9. XANAX [Concomitant]
     Indication: ANXIETY

REACTIONS (3)
  - VOMITING [None]
  - HAEMORRHOIDS [None]
  - ABDOMINAL DISTENSION [None]
